FAERS Safety Report 4924605-4 (Version None)
Quarter: 2006Q1

REPORT INFORMATION
  Report Type: 
  Country: None (occurrence: None)
  Receive Date: 20060222
  Receipt Date: 20060209
  Transmission Date: 20060701
  Serious: Yes (Other)
  Sender: FDA-Public Use
  Company Number: DE-2006-002494

PATIENT
  Age: 69 Year
  Sex: Male

DRUGS (1)
  1. FLUDARA [Suspect]
     Indication: CHRONIC LYMPHOCYTIC LEUKAEMIA
     Dates: start: 20060102, end: 20060107

REACTIONS (2)
  - IDIOPATHIC THROMBOCYTOPENIC PURPURA [None]
  - LYMPHOCYTE COUNT DECREASED [None]
